FAERS Safety Report 10450038 (Version 1)
Quarter: 2014Q3

REPORT INFORMATION
  Report Type: Spontaneous
  Country: US (occurrence: US)
  Receive Date: 20140912
  Receipt Date: 20140912
  Transmission Date: 20150326
  Serious: Yes (Other)
  Sender: FDA-Public Use
  Company Number: US-JNJFOC-20140905594

PATIENT
  Age: 71 Year
  Sex: Female

DRUGS (4)
  1. BENADRYL [Suspect]
     Active Substance: DIPHENHYDRAMINE HYDROCHLORIDE
     Indication: DERMATITIS CONTACT
     Dosage: NECESSARY TO COVER THE REACTION.SOMETIMES EVERY 6 HRS OR ONCE A DAY
     Route: 061
  2. BENADRYL [Suspect]
     Active Substance: DIPHENHYDRAMINE HYDROCHLORIDE
     Indication: ARTHROPOD BITE
     Dosage: NECESSARY TO COVER THE REACTION.SOMETIMES EVERY 6 HRS OR ONCE A DAY
     Route: 061
  3. BENADRYL [Suspect]
     Active Substance: DIPHENHYDRAMINE HYDROCHLORIDE
     Indication: ARTHROPOD BITE
     Dosage: NECESSARY TO COVER THE REACTION.SOMETIMES EVERY 6 HRS OR ONCE A DAY
     Route: 061
  4. BENADRYL [Suspect]
     Active Substance: DIPHENHYDRAMINE HYDROCHLORIDE
     Indication: DERMATITIS CONTACT
     Dosage: NECESSARY TO COVER THE REACTION.SOMETIMES EVERY 6 HRS OR ONCE A DAY
     Route: 061

REACTIONS (1)
  - Heart rate irregular [Recovered/Resolved]
